FAERS Safety Report 6463818-X (Version None)
Quarter: 2009Q4

REPORT INFORMATION
  Report Type: 
  Country: None (occurrence: None)
  Receive Date: 20091201
  Receipt Date: 20091120
  Transmission Date: 20100525
  Serious: Yes (Death, Life-Threatening, Hospitalization, Disabling, Other)
  Sender: FDA-Public Use
  Company Number: JP-JNJFOC-20091104917

PATIENT
  Sex: Female

DRUGS (17)
  1. CRAVIT [Suspect]
     Indication: VOMITING
     Route: 048
     Dates: start: 20091018, end: 20091018
  2. FLOMOXEF SODIUM [Suspect]
     Indication: DRUG USE FOR UNKNOWN INDICATION
     Route: 042
  3. CARBENIN [Suspect]
     Indication: DRUG USE FOR UNKNOWN INDICATION
     Route: 065
  4. ELASPOL [Suspect]
     Indication: DRUG USE FOR UNKNOWN INDICATION
     Route: 065
  5. UNKNOWN MEDICATION [Concomitant]
     Route: 065
  6. CHLORPHENIRAMINE MALEATE [Concomitant]
     Route: 065
  7. SAXIZON [Concomitant]
     Route: 065
  8. SERMION [Concomitant]
     Route: 065
  9. ONEALFA [Concomitant]
     Route: 065
  10. GASMOTIN [Concomitant]
     Route: 065
  11. MEVALOTIN [Concomitant]
     Route: 065
  12. PARIET [Concomitant]
     Route: 065
  13. ALLOID G [Concomitant]
     Route: 065
  14. PRIMPERAN TAB [Concomitant]
     Route: 065
  15. ENTERONON R [Concomitant]
     Route: 065
  16. YOKUKAN-SAN [Concomitant]
     Route: 065
  17. NU-LOTAN [Concomitant]
     Route: 065

REACTIONS (7)
  - HYPERSENSITIVITY [None]
  - INTERSTITIAL LUNG DISEASE [None]
  - LIVER DISORDER [None]
  - LUNG DISORDER [None]
  - RENAL FAILURE ACUTE [None]
  - RESPIRATORY FAILURE [None]
  - TRANSIENT ISCHAEMIC ATTACK [None]
